FAERS Safety Report 12228441 (Version 3)
Quarter: 2016Q3

REPORT INFORMATION
  Report Type: Report from Study
  Country: US (occurrence: US)
  Receive Date: 20160401
  Receipt Date: 20160712
  Transmission Date: 20161109
  Serious: Yes (Hospitalization)
  Sender: FDA-Public Use
  Company Number: US-AMGEN-USASL2016034218

PATIENT
  Sex: Female

DRUGS (1)
  1. REPATHA [Suspect]
     Active Substance: EVOLOCUMAB
     Indication: HYPERCHOLESTEROLAEMIA
     Dosage: UNK
     Route: 065
     Dates: start: 201511

REACTIONS (16)
  - Limb discomfort [Not Recovered/Not Resolved]
  - Joint dislocation [Unknown]
  - Pain [Unknown]
  - Skin haemorrhage [Unknown]
  - Headache [Unknown]
  - Fatigue [Unknown]
  - Adverse event [Unknown]
  - Arthropathy [Unknown]
  - Back pain [Unknown]
  - Asthenia [Unknown]
  - Gait disturbance [Recovering/Resolving]
  - Feeling abnormal [Unknown]
  - Skin lesion [Unknown]
  - Hypersensitivity [Unknown]
  - Dry skin [Unknown]
  - General physical health deterioration [Unknown]
